FAERS Safety Report 15566963 (Version 1)
Quarter: 2018Q4

REPORT INFORMATION
  Report Type: Spontaneous
  Country: GB (occurrence: CZ)
  Receive Date: 20181030
  Receipt Date: 20181030
  Transmission Date: 20190205
  Serious: Yes (Life-Threatening, Other)
  Sender: FDA-Public Use
  Company Number: CZ-FRESENIUS KABI-FK201811184

PATIENT
  Sex: Male

DRUGS (11)
  1. OXALIPLATIN (MANUFACTURER UNKNOWN) [Suspect]
     Active Substance: OXALIPLATIN
     Route: 065
     Dates: start: 20140919, end: 2015
  2. DIAPREL [Concomitant]
     Active Substance: GLICLAZIDE
     Indication: TYPE 2 DIABETES MELLITUS
     Route: 065
  3. LOZAP H [Concomitant]
     Active Substance: HYDROCHLOROTHIAZIDE\LOSARTAN POTASSIUM
     Indication: HYPERTENSION
     Route: 065
  4. VECTIBIX [Suspect]
     Active Substance: PANITUMUMAB
     Indication: COLORECTAL ADENOCARCINOMA
     Route: 065
     Dates: start: 20140919
  5. CAPECITABINE. [Concomitant]
     Active Substance: CAPECITABINE
     Indication: COLORECTAL ADENOCARCINOMA
     Route: 065
     Dates: start: 20160418, end: 20160814
  6. OXALIPLATIN (MANUFACTURER UNKNOWN) [Suspect]
     Active Substance: OXALIPLATIN
     Indication: COLORECTAL ADENOCARCINOMA
     Route: 065
     Dates: start: 20140905
  7. FILGRASTIM [Suspect]
     Active Substance: FILGRASTIM
     Indication: PRODUCT USED FOR UNKNOWN INDICATION
     Route: 065
     Dates: start: 2015
  8. IRINOTECAN [Concomitant]
     Active Substance: IRINOTECAN
     Indication: COLORECTAL ADENOCARCINOMA
     Route: 065
     Dates: start: 20180925
  9. OXALIPLATIN (MANUFACTURER UNKNOWN) [Suspect]
     Active Substance: OXALIPLATIN
     Route: 065
     Dates: start: 20161209
  10. 5-FU [Concomitant]
     Active Substance: FLUOROURACIL
     Indication: COLORECTAL ADENOCARCINOMA
     Route: 065
     Dates: start: 20140905
  11. FOLINIC ACID [Concomitant]
     Active Substance: LEUCOVORIN
     Indication: COLORECTAL ADENOCARCINOMA
     Route: 065
     Dates: start: 20140905

REACTIONS (13)
  - Metastases to pelvis [Unknown]
  - Metastases to peritoneum [Unknown]
  - Ileus [Unknown]
  - Decreased appetite [Unknown]
  - Anal fistula [Unknown]
  - Dermatitis acneiform [Unknown]
  - Colon cancer recurrent [Unknown]
  - Neuropathy peripheral [Unknown]
  - Metastases to lymph nodes [Unknown]
  - Weight decreased [Unknown]
  - Metastases to lung [Unknown]
  - Apparent death [Unknown]
  - Metastases to liver [Unknown]

NARRATIVE: CASE EVENT DATE: 2014
